FAERS Safety Report 8358165-5 (Version None)
Quarter: 2012Q2

REPORT INFORMATION
  Report Type: 
  Country: None (occurrence: None)
  Receive Date: 20120514
  Receipt Date: 20120504
  Transmission Date: 20120825
  Serious: Yes (Hospitalization)
  Sender: FDA-Public Use
  Company Number: US-GLAXOSMITHKLINE-A0933336A

PATIENT
  Sex: Male

DRUGS (2)
  1. AVANDAMET [Suspect]
     Indication: DIABETES MELLITUS
     Route: 065
     Dates: start: 20051114, end: 20091019
  2. AVANDIA [Suspect]
     Indication: DIABETES MELLITUS
     Dosage: 2MG UNKNOWN
     Route: 048
     Dates: start: 20060130, end: 20060902

REACTIONS (2)
  - HEART RATE INCREASED [None]
  - ATRIAL FIBRILLATION [None]
